FAERS Safety Report 6642826-X (Version None)
Quarter: 2010Q1

REPORT INFORMATION
  Report Type: 
  Country: None (occurrence: None)
  Receive Date: 20100319
  Receipt Date: 20100310
  Transmission Date: 20100710
  Serious: Yes (Other)
  Sender: FDA-Public Use
  Company Number: US-ELI_LILLY_AND_COMPANY-US200906006025

PATIENT
  Age: 58 Year
  Sex: Male
  Weight: 77.098 kg

DRUGS (7)
  1. BYETTA [Suspect]
     Dosage: UNK, UNK
     Dates: start: 20060801, end: 20080201
  2. OXYCODONE [Concomitant]
  3. HALCION [Concomitant]
  4. NORVASC [Concomitant]
  5. TRAZODONE HCL [Concomitant]
  6. MORPHINE [Concomitant]
  7. PROMETHAZINE [Concomitant]

REACTIONS (2)
  - PANCREATITIS [None]
  - RENAL INJURY [None]
